FAERS Safety Report 16618806 (Version 1)
Quarter: 2019Q3

REPORT INFORMATION
  Report Type: Spontaneous
  Country: FR (occurrence: FR)
  Receive Date: 20190723
  Receipt Date: 20190723
  Transmission Date: 20191004
  Serious: Yes (Other)
  Sender: FDA-Public Use
  Company Number: PHHY2019FR166008

PATIENT
  Age: 3 Year
  Sex: Male

DRUGS (1)
  1. DESLORATADINE. [Suspect]
     Active Substance: DESLORATADINE
     Indication: PRODUCT USED FOR UNKNOWN INDICATION
     Dosage: 15 DF, UNK
     Route: 065

REACTIONS (5)
  - Somnolence [Unknown]
  - Overdose [Unknown]
  - Accidental exposure to product [Unknown]
  - Abdominal pain [Unknown]
  - Sinus bradycardia [Unknown]
